FAERS Safety Report 11788480 (Version 1)
Quarter: 2015Q4

REPORT INFORMATION
  Report Type: Spontaneous
  Country: ES (occurrence: None)
  Receive Date: 20151125
  Receipt Date: 20151125
  Transmission Date: 20160305
  Serious: Yes (Hospitalization)
  Sender: FDA-Public Use
  Company Number: 15EU001774

PATIENT
  Age: 70 Year
  Sex: Male

DRUGS (3)
  1. ALIPZA (PITAVASTATIN) TABLET, 2MG [Suspect]
     Active Substance: PITAVASTATIN
     Indication: PRODUCT USED FOR UNKNOWN INDICATION
     Route: 048
     Dates: start: 201507, end: 20151005
  2. EZETROL (EZETIMIBE) [Suspect]
     Active Substance: EZETIMIBE
     Indication: PRODUCT USED FOR UNKNOWN INDICATION
     Route: 048
     Dates: start: 201404
  3. GEMFIBROZIL (GEMFIBROZIL) [Suspect]
     Active Substance: GEMFIBROZIL
     Indication: PRODUCT USED FOR UNKNOWN INDICATION
     Route: 048
     Dates: start: 201306, end: 20151005

REACTIONS (2)
  - Rhabdomyolysis [None]
  - Drug interaction [None]

NARRATIVE: CASE EVENT DATE: 20151005
